FAERS Safety Report 7947929-5 (Version None)
Quarter: 2011Q4

REPORT INFORMATION
  Report Type: 
  Country: None (occurrence: None)
  Receive Date: 20111130
  Receipt Date: 20111128
  Transmission Date: 20120403
  Serious: Yes (Other)
  Sender: FDA-Public Use
  Company Number: US-BRACCO-006947

PATIENT
  Age: 44 Year
  Sex: Female

DRUGS (3)
  1. READI-CAT [Suspect]
     Indication: INSULINOMA
     Dosage: TWO 450 ML BOTTLES
     Route: 048
     Dates: start: 20110911, end: 20110911
  2. READI-CAT [Suspect]
     Indication: HYPOGLYCAEMIA
     Dosage: TWO 450 ML BOTTLES
     Route: 048
     Dates: start: 20110911, end: 20110911
  3. READI-CAT [Suspect]
     Indication: COMPUTERISED TOMOGRAM ABDOMEN
     Dosage: TWO 450 ML BOTTLES
     Route: 048
     Dates: start: 20110911, end: 20110911

REACTIONS (1)
  - PARALYSIS [None]
